FAERS Safety Report 10141527 (Version 1)
Quarter: 2014Q2

REPORT INFORMATION
  Report Type: Spontaneous
  Country: US (occurrence: US)
  Receive Date: 20140429
  Receipt Date: 20140429
  Transmission Date: 20141212
  Serious: Yes (Hospitalization)
  Sender: FDA-Public Use
  Company Number: US-GLAXOSMITHKLINE-A1070502A

PATIENT
  Age: 39 Year
  Sex: Female

DRUGS (9)
  1. ADVAIR [Suspect]
     Indication: ASTHMA
     Dosage: 1PUFF PER DAY
     Route: 055
  2. ALBUTEROL [Concomitant]
  3. AMPHETAMINE [Concomitant]
  4. COUMADIN [Concomitant]
  5. ARMOUR THYROID [Concomitant]
  6. LISINOPRIL [Concomitant]
  7. SOMA [Concomitant]
  8. ALPRAZOLAM [Concomitant]
  9. OXYCODONE [Concomitant]

REACTIONS (12)
  - Cellulitis [Unknown]
  - Renal failure [Unknown]
  - Sepsis [Unknown]
  - Investigation [Unknown]
  - Deep vein thrombosis [Unknown]
  - Ankle fracture [Unknown]
  - Joint swelling [Unknown]
  - Fall [Unknown]
  - Fractured coccyx [Recovered/Resolved with Sequelae]
  - Feeling abnormal [Unknown]
  - Peripheral swelling [Unknown]
  - Pain [Unknown]
